FAERS Safety Report 8438351-6 (Version None)
Quarter: 2012Q2

REPORT INFORMATION
  Report Type: 
  Country: None (occurrence: None)
  Receive Date: 20120614
  Receipt Date: 20120614
  Transmission Date: 20120825
  Serious: Yes (Life-Threatening, Hospitalization, Other)
  Sender: FDA-Public Use
  Company Number: JP-AMGEN-JPNSP2012027193

PATIENT
  Age: 82 Year
  Sex: Female
  Weight: 40 kg

DRUGS (13)
  1. PREDNISOLONE [Concomitant]
     Dosage: 1 MG, 2X/DAY
  2. ENBREL [Suspect]
     Indication: RHEUMATOID ARTHRITIS
     Dosage: 25 MG, WEEKLY
     Route: 058
  3. ALENDRONATE SODIUM [Concomitant]
     Dosage: 35 MG, WEEKLY
  4. TAGAMET HB [Concomitant]
     Dosage: 200 MG, 2X/DAY
  5. FERROMIA                           /00023516/ [Concomitant]
     Dosage: 50 MG, 1X/DAY
  6. CELEBREX [Concomitant]
     Dosage: 200 MG, 1X/DAY
  7. METHOTREXATE [Concomitant]
     Dosage: 8 MG, QWK
     Dates: start: 20120101
  8. METHOTREXATE [Concomitant]
     Dosage: 4 MG, 2X/WEEK
  9. AZULFIDINE [Concomitant]
     Dosage: 500 MG, 1X/DAY
  10. ZOLPIDEM [Concomitant]
     Dosage: 5 MG, 1X/DAY
  11. SELBEX [Concomitant]
     Dosage: 50 MG, 2X/DAY
  12. SENNOSIDE A+B [Concomitant]
     Dosage: 24 MG, 1X/DAY
  13. IRBESARTAN [Concomitant]
     Dosage: 50 MG, 1X/DAY

REACTIONS (2)
  - ANAEMIA [None]
  - THYMOMA [None]
